FAERS Safety Report 6118090-7 (Version None)
Quarter: 2009Q1

REPORT INFORMATION
  Report Type: 
  Country: None (occurrence: None)
  Receive Date: 20090314
  Receipt Date: 20090206
  Transmission Date: 20090719
  Serious: No
  Sender: FDA-Public Use
  Company Number: US-ABBOTT-09P-163-0502578-00

PATIENT
  Sex: Female
  Weight: 91.254 kg

DRUGS (1)
  1. HUMIRA [Suspect]
     Indication: RHEUMATOID ARTHRITIS
     Dates: start: 20030207, end: 20081230

REACTIONS (3)
  - BACTERIAL DISEASE CARRIER [None]
  - BRONCHITIS [None]
  - CULTURE THROAT POSITIVE [None]
